FAERS Safety Report 13828954 (Version 1)
Quarter: 2017Q3

REPORT INFORMATION
  Report Type: Report from Study
  Country: IT (occurrence: IT)
  Receive Date: 20170803
  Receipt Date: 20170803
  Transmission Date: 20171127
  Serious: Yes (Hospitalization)
  Sender: FDA-Public Use
  Company Number: IT-MYLANLABS-2017M1048214

PATIENT

DRUGS (3)
  1. BRUFEN [Suspect]
     Active Substance: IBUPROFEN
     Indication: ARTHROPATHY
     Dosage: UNK
     Route: 048
  2. VALSARTAN. [Suspect]
     Active Substance: VALSARTAN
     Indication: PRODUCT USED FOR UNKNOWN INDICATION
     Dosage: UNK
     Route: 048
  3. INSULIN [Suspect]
     Active Substance: INSULIN NOS
     Indication: PRODUCT USED FOR UNKNOWN INDICATION
     Dosage: UNK
     Route: 058

REACTIONS (3)
  - Dyspepsia [Unknown]
  - Hyperglycaemia [Unknown]
  - Vomiting [Unknown]

NARRATIVE: CASE EVENT DATE: 20170706
